FAERS Safety Report 5893619-2 (Version None)
Quarter: 2008Q3

REPORT INFORMATION
  Report Type: 
  Country: None (occurrence: None)
  Receive Date: 20080923
  Receipt Date: 20070920
  Transmission Date: 20090109
  Serious: No
  Sender: FDA-Public Use
  Company Number: US-ASTRAZENECA-2007UW22175

PATIENT
  Sex: Female

DRUGS (4)
  1. SEROQUEL [Suspect]
     Route: 048
  2. LAMICTAL [Concomitant]
  3. WELLBUTRIN [Concomitant]
  4. ADDERALL 10 [Concomitant]

REACTIONS (1)
  - DRUG SCREEN FALSE POSITIVE [None]
